FAERS Safety Report 17845554 (Version 3)
Quarter: 2020Q4

REPORT INFORMATION
  Report Type: Spontaneous
  Country: US (occurrence: US)
  Receive Date: 20200601
  Receipt Date: 20201006
  Transmission Date: 20210113
  Serious: No
  Sender: FDA-Public Use
  Company Number: US-PFIZER INC-2020212911

PATIENT
  Age: 57 Year
  Sex: Female

DRUGS (2)
  1. PRISTIQ EXTENDED-RELEASE [Suspect]
     Active Substance: DESVENLAFAXINE SUCCINATE
     Dosage: 25 MG, 1X/DAY (1 PO QAM)
     Route: 048
  2. PRISTIQ EXTENDED-RELEASE [Suspect]
     Active Substance: DESVENLAFAXINE SUCCINATE
     Dosage: 50 MG, 1X/DAY (1 PO QAM)
     Route: 048

REACTIONS (1)
  - Anxiety [Unknown]
